FAERS Safety Report 11123406 (Version 1)
Quarter: 2015Q2

REPORT INFORMATION
  Report Type: Spontaneous
  Country: US (occurrence: US)
  Receive Date: 20150519
  Receipt Date: 20150519
  Transmission Date: 20150821
  Serious: No
  Sender: FDA-Public Use
  Company Number: US-AUXILIUM PHARMACEUTICALS INC.-201503115

PATIENT
  Age: 72 Year
  Sex: Male
  Weight: 83.08 kg

DRUGS (1)
  1. XIAFLEX [Suspect]
     Active Substance: COLLAGENASE CLOSTRIDIUM HISTOLYTICUM
     Indication: PEYRONIE^S DISEASE
     Route: 026
     Dates: start: 201410

REACTIONS (2)
  - Prescribed overdose [Not Recovered/Not Resolved]
  - Penile haematoma [Not Recovered/Not Resolved]

NARRATIVE: CASE EVENT DATE: 20150309
